FAERS Safety Report 17526921 (Version 2)
Quarter: 2020Q1

REPORT INFORMATION
  Report Type: Spontaneous
  Country: CH (occurrence: CH)
  Receive Date: 20200311
  Receipt Date: 20200325
  Transmission Date: 20200409
  Serious: Yes (Other)
  Sender: FDA-Public Use
  Company Number: CH-TEVA-2020-CH-1196700

PATIENT
  Age: 55 Year
  Sex: Female

DRUGS (9)
  1. ONDANSETRON [Concomitant]
     Active Substance: ONDANSETRON
     Route: 065
  2. UROMITEXAN [Concomitant]
     Active Substance: MESNA
     Route: 065
  3. IFOSFAMIDE. [Interacting]
     Active Substance: IFOSFAMIDE
     Indication: BREAST CANCER
     Dosage: FIVE-DAY CHEMOTHERAPY CYCLE
     Route: 065
     Dates: start: 2018
  4. IFOSFAMIDE. [Interacting]
     Active Substance: IFOSFAMIDE
     Indication: BREAST CANCER METASTATIC
  5. IFOSFAMIDE. [Interacting]
     Active Substance: IFOSFAMIDE
     Indication: PHYLLODES TUMOUR
  6. DOXORUBICIN [Concomitant]
     Active Substance: DOXORUBICIN
     Indication: PHYLLODES TUMOUR
  7. DILTIAZEM. [Suspect]
     Active Substance: DILTIAZEM
     Indication: ATRIAL FIBRILLATION
     Dosage: UP TO 10 MG/HOUR
     Route: 050
  8. DOXORUBICIN [Concomitant]
     Active Substance: DOXORUBICIN
     Indication: BREAST CANCER METASTATIC
  9. DOXORUBICIN [Concomitant]
     Active Substance: DOXORUBICIN
     Indication: BREAST CANCER
     Dosage: FIVE-DAY CHEMOTHERAPY CYCLE
     Route: 065
     Dates: start: 2018

REACTIONS (3)
  - Drug interaction [Recovered/Resolved]
  - Neurotoxicity [Recovered/Resolved]
  - Psychotic disorder [Recovered/Resolved]
